FAERS Safety Report 18885118 (Version 1)
Quarter: 2021Q1

REPORT INFORMATION
  Report Type: Spontaneous
  Country: US (occurrence: US)
  Receive Date: 20210212
  Receipt Date: 20210212
  Transmission Date: 20210420
  Serious: Yes (Other)
  Sender: FDA-Public Use
  Company Number: None

PATIENT
  Age: 60 Year
  Sex: Male
  Weight: 90.1 kg

DRUGS (1)
  1. IVERMAX [Suspect]
     Active Substance: IVERMECTIN
     Indication: COVID-19
     Dosage: ?          OTHER FREQUENCY:UNKNOWN;?
     Route: 048

REACTIONS (7)
  - Hypothermia [None]
  - Hypoxia [None]
  - Intentional product misuse [None]
  - Overdose [None]
  - General physical health deterioration [None]
  - Intestinal perforation [None]
  - Drug interaction [None]

NARRATIVE: CASE EVENT DATE: 20210210
